FAERS Safety Report 9192242 (Version 1)
Quarter: 2013Q1

REPORT INFORMATION
  Report Type: Spontaneous
  Country: US (occurrence: US)
  Receive Date: 20130327
  Receipt Date: 20130327
  Transmission Date: 20140127
  Serious: Yes (Other)
  Sender: FDA-Public Use
  Company Number: US-JNJFOC-20130310193

PATIENT
  Age: 83 Year
  Sex: Female
  Weight: 77.1 kg

DRUGS (20)
  1. IBUPROFEN [Suspect]
     Indication: PAIN
     Route: 065
  2. TYLENOL [Suspect]
     Route: 065
  3. TYLENOL [Suspect]
     Indication: PAIN
     Route: 065
  4. GABAPENTIN [Suspect]
     Indication: PAIN
     Route: 065
  5. LYRICA [Suspect]
     Indication: NEUROPATHY PERIPHERAL
     Route: 065
     Dates: end: 201302
  6. LYRICA [Suspect]
     Indication: NEUROPATHY PERIPHERAL
     Route: 065
     Dates: start: 1992
  7. LYRICA [Suspect]
     Indication: NEUROPATHY PERIPHERAL
     Route: 065
  8. ASPIRIN [Suspect]
     Indication: PAIN
     Route: 065
  9. OS-CAL D [Concomitant]
     Route: 065
  10. OMEPRAZOLE [Concomitant]
     Route: 065
  11. PLAVIX [Concomitant]
     Route: 065
  12. CRESTOR [Concomitant]
     Route: 065
  13. CALCITROL (8501) [Concomitant]
  14. VITAMIN B COMPLEX [Concomitant]
     Route: 065
  15. ALBUTEROL [Concomitant]
     Route: 065
  16. BYSTOLIC [Concomitant]
     Indication: CARDIAC DISORDER
     Route: 065
  17. TRAMADOL [Concomitant]
     Route: 065
  18. ISOSORBIDE [Concomitant]
     Indication: CARDIAC DISORDER
     Route: 065
  19. ISOSORBIDE [Concomitant]
     Indication: CARDIAC DISORDER
     Route: 065
  20. DIOVAN [Concomitant]
     Indication: HYPERTENSION
     Route: 065

REACTIONS (17)
  - Myocardial infarction [Unknown]
  - Haemorrhage [Unknown]
  - Joint instability [Unknown]
  - Eye operation [Unknown]
  - Balance disorder [Unknown]
  - Visual impairment [Unknown]
  - Blindness unilateral [Unknown]
  - Visual field defect [Unknown]
  - Retinal disorder [Unknown]
  - Optic ischaemic neuropathy [Unknown]
  - Glaucoma [Unknown]
  - Muscle twitching [Unknown]
  - Vasculitis [Unknown]
  - Discomfort [Unknown]
  - Pain in extremity [Not Recovered/Not Resolved]
  - Breakthrough pain [Unknown]
  - Drug ineffective [Unknown]
